FAERS Safety Report 4502940-1 (Version None)
Quarter: 2004Q4

REPORT INFORMATION
  Report Type: 
  Country: None (occurrence: None)
  Receive Date: 20041115
  Receipt Date: 20041105
  Transmission Date: 20050328
  Serious: Yes (Other)
  Sender: FDA-Public Use
  Company Number: KII-2002-0004518

PATIENT
  Sex: Male
  Weight: 204.1 kg

DRUGS (2)
  1. OXYCONTIN [Suspect]
     Indication: PAIN
  2. DURAGESIC [Suspect]
     Indication: PAIN
     Dosage: TRANSDERMAL
     Route: 062

REACTIONS (3)
  - CARDIO-RESPIRATORY ARREST [None]
  - DRUG INEFFECTIVE [None]
  - MEDICATION ERROR [None]
